FAERS Safety Report 8652421 (Version 3)
Quarter: 2012Q4

REPORT INFORMATION
  Report Type: 
  Country: US (occurrence: US)
  Receive Date: 20120706
  Receipt Date: 20120829
  Transmission Date: 20130627
  Serious: No
  Sender: FDA-Public Use
  Company Number: US-PFIZER INC-2012159306

PATIENT
  Sex: Female

DRUGS (2)
  1. LYRICA [Suspect]
     Dosage: 100 mg, 2x/day
     Dates: end: 20120618
  2. XALATAN [Suspect]
     Dosage: UNK

REACTIONS (1)
  - Insomnia [Unknown]
